FAERS Safety Report 8934138 (Version 1)
Quarter: 2012Q4

REPORT INFORMATION
  Report Type: 
  Country: US (occurrence: US)
  Receive Date: 20121129
  Receipt Date: 20121129
  Transmission Date: 20130627
  Serious: Yes (Life-Threatening, Hospitalization, Disabling)
  Sender: FDA-Public Use
  Company Number: US-GLAXOSMITHKLINE-A0974976A

PATIENT
  Age: 54 Year
  Sex: Female

DRUGS (4)
  1. WELLBUTRIN SR [Suspect]
     Indication: DEPRESSION
     Dosage: 150MG Twice per day
     Route: 048
     Dates: start: 2002
  2. SYNTHROID [Concomitant]
  3. VICODIN [Concomitant]
  4. VITAMINS [Concomitant]

REACTIONS (7)
  - Convulsion [Unknown]
  - Insomnia [Unknown]
  - Hypotension [Unknown]
  - Paranoia [Unknown]
  - Disturbance in attention [Unknown]
  - Restlessness [Unknown]
  - Anxiety [Unknown]
